FAERS Safety Report 14161643 (Version 1)
Quarter: 2017Q4

REPORT INFORMATION
  Report Type: Spontaneous
  Country: US (occurrence: US)
  Receive Date: 20171105
  Receipt Date: 20171105
  Transmission Date: 20180321
  Serious: Yes (Disabling)
  Sender: FDA-Public Use
  Company Number: None

PATIENT
  Age: 63 Year
  Sex: Female
  Weight: 58.5 kg

DRUGS (1)
  1. DOTAREM [Suspect]
     Active Substance: GADOTERATE MEGLUMINE
     Indication: NUCLEAR MAGNETIC RESONANCE IMAGING
     Route: 042
     Dates: start: 20170916, end: 20170916

REACTIONS (16)
  - Muscular weakness [None]
  - Dysphagia [None]
  - Thinking abnormal [None]
  - Dyspnoea [None]
  - Joint swelling [None]
  - Skin tightness [None]
  - Coordination abnormal [None]
  - Pain [None]
  - Headache [None]
  - Breast cancer [None]
  - Joint stiffness [None]
  - Cough [None]
  - Arthralgia [None]
  - Vision blurred [None]
  - Aphasia [None]
  - Stress [None]

NARRATIVE: CASE EVENT DATE: 20170916
